FAERS Safety Report 10603010 (Version 1)
Quarter: 2014Q4

REPORT INFORMATION
  Report Type: Spontaneous
  Country: US (occurrence: US)
  Receive Date: 20141124
  Receipt Date: 20141124
  Transmission Date: 20150529
  Serious: No
  Sender: FDA-Public Use
  Company Number: US-NOVEN-14US010535

PATIENT
  Sex: Female

DRUGS (3)
  1. MINIVELLE [Suspect]
     Active Substance: ESTRADIOL
     Indication: HORMONE REPLACEMENT THERAPY
     Dosage: 0.05MG/DAY, UNK
     Route: 062
     Dates: start: 201410
  2. MINIVELLE [Suspect]
     Active Substance: ESTRADIOL
     Dosage: 0.05MG/DAY, UNK
     Route: 062
     Dates: start: 20140829
  3. MINIVELLE [Suspect]
     Active Substance: ESTRADIOL
     Dosage: 0.05MG/DAY, UNK
     Route: 062
     Dates: start: 20140805

REACTIONS (12)
  - Dizziness [Recovered/Resolved]
  - Nausea [Recovered/Resolved]
  - Application site pruritus [Not Recovered/Not Resolved]
  - Wrong technique in drug usage process [Recovered/Resolved]
  - Application site urticaria [Recovering/Resolving]
  - Drug prescribing error [Not Recovered/Not Resolved]
  - Headache [Recovered/Resolved]
  - Application site rash [Recovering/Resolving]
  - Product quality issue [Not Recovered/Not Resolved]
  - Off label use [Not Recovered/Not Resolved]
  - Incorrect drug administration duration [Unknown]
  - Hypersensitivity [Recovered/Resolved]

NARRATIVE: CASE EVENT DATE: 2014
